FAERS Safety Report 9910919 (Version 1)
Quarter: 2014Q1

REPORT INFORMATION
  Report Type: Spontaneous
  Country: US (occurrence: US)
  Receive Date: 20140219
  Receipt Date: 20140219
  Transmission Date: 20141002
  Serious: Yes (Disabling, Other)
  Sender: FDA-Public Use
  Company Number: US-TEVA-462742USA

PATIENT
  Sex: Female

DRUGS (8)
  1. VENLAFAXINE [Suspect]
     Dates: start: 20140125
  2. XANAX [Concomitant]
  3. AMBIEN [Concomitant]
     Indication: NIGHTMARE
  4. ACYCLOVIR [Concomitant]
     Indication: ORAL HERPES
  5. VITAMINS [Concomitant]
  6. CALCIUM [Concomitant]
  7. FISH OIL [Concomitant]
  8. VITAMIN B12 [Concomitant]

REACTIONS (13)
  - Withdrawal syndrome [Unknown]
  - Self injurious behaviour [Unknown]
  - Aggression [Unknown]
  - Paraesthesia [Unknown]
  - Convulsion [Unknown]
  - Muscle disorder [Unknown]
  - Eye disorder [Unknown]
  - Activities of daily living impaired [Unknown]
  - Abnormal behaviour [Unknown]
  - Feeling abnormal [Unknown]
  - Vertigo [Unknown]
  - Blister [Unknown]
  - Pain [Unknown]
